FAERS Safety Report 8490424-8 (Version None)
Quarter: 2012Q3

REPORT INFORMATION
  Report Type: 
  Country: None (occurrence: None)
  Receive Date: 20120705
  Receipt Date: 20120627
  Transmission Date: 20120928
  Serious: Yes (Other)
  Sender: FDA-Public Use
  Company Number: IL-MPIJNJ-2012-04666

PATIENT

DRUGS (7)
  1. CYCLOPHOSPHAMIDE [Suspect]
     Indication: MULTIPLE MYELOMA
  2. ADRIAMYCIN PFS [Suspect]
     Indication: MULTIPLE MYELOMA
  3. DEXAMETHASONE SODIUM PHOSPHATE [Suspect]
     Indication: MULTIPLE MYELOMA
  4. CISPLATIN [Suspect]
     Indication: MULTIPLE MYELOMA
  5. ETOPOSIDE [Suspect]
     Indication: MULTIPLE MYELOMA
  6. VELCADE [Suspect]
     Indication: MULTIPLE MYELOMA
  7. THALIDOMIDE [Suspect]
     Indication: MULTIPLE MYELOMA

REACTIONS (1)
  - PNEUMOCYSTIS JIROVECI INFECTION [None]
